FAERS Safety Report 12902224 (Version 2)
Quarter: 2016Q4

REPORT INFORMATION
  Report Type: Spontaneous
  Country: US (occurrence: US)
  Receive Date: 20161102
  Receipt Date: 20161111
  Transmission Date: 20170207
  Serious: Yes (Other)
  Sender: FDA-Public Use
  Company Number: US-PFIZER INC-2016508301

PATIENT
  Age: 55 Year
  Sex: Male
  Weight: 124.7 kg

DRUGS (1)
  1. LYRICA [Suspect]
     Active Substance: PREGABALIN
     Dosage: 75MG ONE CAPSULE AT BEDTIME
     Route: 048
     Dates: start: 20161026, end: 20161029

REACTIONS (3)
  - Pain in extremity [Unknown]
  - Drug hypersensitivity [Unknown]
  - Dermatitis bullous [Recovering/Resolving]

NARRATIVE: CASE EVENT DATE: 20161027
